FAERS Safety Report 8000670-5 (Version None)
Quarter: 2011Q4

REPORT INFORMATION
  Report Type: 
  Country: None (occurrence: None)
  Receive Date: 20111222
  Receipt Date: 20111216
  Transmission Date: 20120403
  Serious: Yes (Other)
  Sender: FDA-Public Use
  Company Number: KR-US-EMD SERONO, INC.-7101921

PATIENT
  Sex: Female

DRUGS (2)
  1. IBUPROFEN [Concomitant]
     Indication: PAIN
     Route: 048
     Dates: start: 20110801
  2. REBIF [Suspect]
     Indication: MULTIPLE SCLEROSIS
     Route: 058
     Dates: start: 20110727

REACTIONS (2)
  - RETINAL HAEMORRHAGE [None]
  - RETINAL DISORDER [None]
